FAERS Safety Report 5637205-8 (Version None)
Quarter: 2008Q1

REPORT INFORMATION
  Report Type: 
  Country: None (occurrence: None)
  Receive Date: 20080220
  Receipt Date: 20080220
  Transmission Date: 20080703
  Serious: No
  Sender: FDA-Public Use
  Company Number: None

PATIENT
  Age: 39 Year
  Sex: Male
  Weight: 79.9 kg

DRUGS (1)
  1. GLIADEL [Suspect]
     Indication: GLIOBLASTOMA MULTIFORME
     Dosage: 61.6 MG PER WAFER  ONE TIME  IMPLANT
     Dates: start: 20071210

REACTIONS (4)
  - CENTRAL NERVOUS SYSTEM NECROSIS [None]
  - INTRACRANIAL HYPOTENSION [None]
  - POST PROCEDURAL SWELLING [None]
  - POSTOPERATIVE FEVER [None]
